FAERS Safety Report 16555975 (Version 1)
Quarter: 2019Q3

REPORT INFORMATION
  Report Type: Spontaneous
  Country: US (occurrence: US)
  Receive Date: 20190710
  Receipt Date: 20190710
  Transmission Date: 20191004
  Serious: No
  Sender: FDA-Public Use
  Company Number: US-TEVA-2019-US-1071863

PATIENT
  Sex: Male

DRUGS (4)
  1. PROVIGIL [Suspect]
     Active Substance: MODAFINIL
     Indication: SOMNOLENCE
  2. PROVIGIL [Suspect]
     Active Substance: MODAFINIL
     Indication: SHIFT WORK DISORDER
     Route: 065
     Dates: start: 201211
  3. NUVIGIL [Suspect]
     Active Substance: ARMODAFINIL
     Indication: SOMNOLENCE
  4. NUVIGIL [Suspect]
     Active Substance: ARMODAFINIL
     Indication: SHIFT WORK DISORDER
     Dosage: 250 MILLIGRAM DAILY;
     Route: 065
     Dates: start: 201211

REACTIONS (5)
  - Headache [Unknown]
  - Product taste abnormal [Unknown]
  - Urine odour abnormal [Unknown]
  - Migraine [Unknown]
  - Wrong technique in product usage process [Unknown]
